FAERS Safety Report 9839876 (Version 1)
Quarter: 2014Q1

REPORT INFORMATION
  Report Type: Spontaneous
  Country: AR (occurrence: AR)
  Receive Date: 20140124
  Receipt Date: 20140124
  Transmission Date: 20141002
  Serious: Yes (Life-Threatening, Other)
  Sender: FDA-Public Use
  Company Number: PHHY2014AR008182

PATIENT
  Sex: Male

DRUGS (4)
  1. TEGRETOL [Suspect]
     Indication: EPILEPSY
     Dosage: 15 ML, UNK
     Route: 048
     Dates: start: 1999
  2. CLOBAZAM [Concomitant]
     Dosage: UNK UKN, UNK
     Route: 048
     Dates: start: 1999
  3. VALPROIC ACID [Concomitant]
     Dosage: UNK UKN, UNK
     Route: 048
     Dates: start: 1999
  4. VALPROIC ACID [Concomitant]
     Dosage: 16 MG (6 MG IN THE MORNING AND 10 MG AT NIGHT), DAILY
     Route: 048

REACTIONS (2)
  - Nervous system disorder [Recovering/Resolving]
  - Urinary incontinence [Recovering/Resolving]
